FAERS Safety Report 5525575-0 (Version None)
Quarter: 2007Q4

REPORT INFORMATION
  Report Type: 
  Country: None (occurrence: None)
  Receive Date: 20071126
  Receipt Date: 20071116
  Transmission Date: 20080405
  Serious: Yes (Other)
  Sender: FDA-Public Use
  Company Number: B0496531A

PATIENT
  Age: 35 Year
  Sex: Female

DRUGS (3)
  1. LAPATINIB [Suspect]
     Indication: BREAST CANCER
     Dosage: 1250MG PER DAY
     Route: 065
  2. CAPECITABINE [Suspect]
     Indication: DRUG USE FOR UNKNOWN INDICATION
     Route: 065
  3. UNKNOWN MEDICATION [Suspect]
     Indication: URINARY TRACT INFECTION
     Route: 065

REACTIONS (2)
  - TRANSAMINASES INCREASED [None]
  - URINARY TRACT INFECTION [None]
